FAERS Safety Report 4568433-0 (Version None)
Quarter: 2005Q1

REPORT INFORMATION
  Report Type: 
  Country: None (occurrence: None)
  Receive Date: 20050131
  Receipt Date: 20050110
  Transmission Date: 20050727
  Serious: Yes (Disabling)
  Sender: FDA-Public Use
  Company Number: 9737

PATIENT
  Age: 40 Year
  Sex: Female

DRUGS (1)
  1. CYTARABINE [Suspect]
     Indication: ACUTE MYELOID LEUKAEMIA
     Dosage: 3 G/M2 BID

REACTIONS (15)
  - ASTHENIA [None]
  - CEREBELLAR ATROPHY [None]
  - CEREBELLAR SYNDROME [None]
  - DIPLOPIA [None]
  - DISEASE RECURRENCE [None]
  - DRUG TOXICITY [None]
  - HYPOREFLEXIA [None]
  - IMMUNE SYSTEM DISORDER [None]
  - MUSCULAR WEAKNESS [None]
  - NERVE INJURY [None]
  - NEUROPATHY PERIPHERAL [None]
  - POLYNEUROPATHY [None]
  - PYREXIA [None]
  - REFUSAL OF TREATMENT BY PATIENT [None]
  - VASCULITIS [None]
